FAERS Safety Report 4990339-3 (Version None)
Quarter: 2006Q2

REPORT INFORMATION
  Report Type: 
  Country: None (occurrence: None)
  Receive Date: 20060427
  Receipt Date: 20060418
  Transmission Date: 20061013
  Serious: No
  Sender: FDA-Public Use
  Company Number: 06H-167-0307541-00

PATIENT
  Age: 74 Year
  Sex: Female

DRUGS (9)
  1. BUPIVACAINE HCL [Suspect]
     Indication: LOCAL ANAESTHESIA
     Dosage: INJECTION
  2. LIDOCAINE HYDROCHLORIDE 2% INJECTION (LIDOCAINE HYDROCHLORIDE) (LIDOCA [Suspect]
     Indication: LOCAL ANAESTHESIA
     Dosage: INJECTION
  3. HYALURONIDASE [Suspect]
     Indication: LOCAL ANAESTHESIA
     Dosage: 500 IU, INJECTION
  4. POVIDONE-IODINE 5% POVIDONE-IODINE) [Suspect]
     Indication: ENDOPHTHALMITIS
  5. POVIDONE-IODINE 5% POVIDONE-IODINE) [Suspect]
     Indication: PROPHYLAXIS
  6. PROXYMETACAINE (PROXYMETACAINE) [Concomitant]
  7. CEFUROXIME [Concomitant]
  8. PREDNISOLONE 1% (PREDNISOLONE) [Concomitant]
  9. CHLORAMPHENICOL [Concomitant]

REACTIONS (5)
  - ANAESTHETIC COMPLICATION [None]
  - DRUG HYPERSENSITIVITY [None]
  - EXOPHTHALMOS [None]
  - EYE PAIN [None]
  - PAROPHTHALMIA [None]
